FAERS Safety Report 9492269 (Version 1)
Quarter: 2013Q3

REPORT INFORMATION
  Report Type: Spontaneous
  Country: BR (occurrence: BR)
  Receive Date: 20130830
  Receipt Date: 20130830
  Transmission Date: 20140515
  Serious: Yes (Death, Other)
  Sender: FDA-Public Use
  Company Number: BR-PFIZER INC-2013249609

PATIENT
  Age: 89 Year
  Sex: Female

DRUGS (1)
  1. CELEBRA [Suspect]
     Dosage: 200 MG CAPSULE BUT DOSE UNSPECIFIED
     Route: 048
     Dates: start: 2005

REACTIONS (2)
  - Post procedural complication [Fatal]
  - Abdominal adhesions [Unknown]
